FAERS Safety Report 9670206 (Version 2)
Quarter: 2013Q4

REPORT INFORMATION
  Report Type: Spontaneous
  Country: CA (occurrence: CA)
  Receive Date: 20131105
  Receipt Date: 20131105
  Transmission Date: 20140711
  Serious: Yes (Hospitalization, Other)
  Sender: FDA-Public Use
  Company Number: CA-LUNDBECK-DKLU1079546

PATIENT
  Age: 46 Year
  Sex: Male

DRUGS (10)
  1. ONFI [Suspect]
     Indication: CONVULSION
     Dates: start: 200801, end: 200810
  2. ONFI [Interacting]
     Dates: start: 200810
  3. ONFI [Interacting]
     Dates: start: 201012
  4. VALPROIC ACID [Suspect]
     Indication: CONVULSION
     Dates: start: 200706
  5. VALPROIC ACID [Suspect]
     Dates: start: 200801
  6. VALPROIC ACID [Suspect]
     Dates: start: 201012
  7. LOPINAVIR/RITONAVIR [Suspect]
     Indication: PRODUCT USED FOR UNKNOWN INDICATION
  8. ETRAVIRINE [Interacting]
     Indication: PRODUCT USED FOR UNKNOWN INDICATION
  9. RALTEGRAVIR [Suspect]
     Indication: PRODUCT USED FOR UNKNOWN INDICATION
     Dates: start: 200710
  10. EMTRICITABINE/TENOFOVIR DISOPROXIL FUMARATE [Suspect]
     Indication: PRODUCT USED FOR UNKNOWN INDICATION

REACTIONS (10)
  - Neurotoxicity [Recovered/Resolved]
  - Asthenia [Recovered/Resolved]
  - Drug level increased [Recovered/Resolved]
  - Central nervous system lesion [Recovering/Resolving]
  - Dysarthria [Recovered/Resolved]
  - Drug interaction [Recovered/Resolved]
  - Gait disturbance [Recovered/Resolved]
  - Somnolence [Recovered/Resolved]
  - Convulsion [Recovered/Resolved]
  - Drug resistance [Unknown]
